FAERS Safety Report 4943008-X (Version None)
Quarter: 2006Q1

REPORT INFORMATION
  Report Type: 
  Country: None (occurrence: None)
  Receive Date: 20060314
  Receipt Date: 20040629
  Transmission Date: 20060701
  Serious: Yes (Other)
  Sender: FDA-Public Use
  Company Number: US-SANOFI-SYNTHELABO-D01200402

PATIENT
  Age: 77 Year
  Sex: Male
  Weight: 78 kg

DRUGS (11)
  1. FONDAPARINUX [Suspect]
     Indication: ACUTE CORONARY SYNDROME
     Dosage: 2.5MG PER DAY
     Route: 058
     Dates: start: 20030907, end: 20030909
  2. ASCORBIC ACID [Concomitant]
     Route: 048
  3. ASPIRIN [Concomitant]
     Dosage: 81MG PER DAY
     Route: 048
  4. CARVEDILOL [Concomitant]
     Dosage: 50MG PER DAY
     Route: 048
  5. GLIMEPIRIDE [Concomitant]
     Route: 048
  6. HUMAN INSULIN [Concomitant]
  7. LISINOPRIL [Concomitant]
     Route: 048
  8. METOPROLOL [Concomitant]
     Dosage: 25MG PER DAY
     Route: 048
  9. MULTI-VITAMIN [Concomitant]
     Route: 048
  10. POTASSIUM CHLORIDE [Concomitant]
     Route: 048
  11. SIMVASTATIN [Concomitant]
     Route: 048

REACTIONS (1)
  - CATHETER RELATED COMPLICATION [None]
